FAERS Safety Report 17985960 (Version 1)
Quarter: 2020Q3

REPORT INFORMATION
  Report Type: Spontaneous
  Country: PT (occurrence: PT)
  Receive Date: 20200706
  Receipt Date: 20200706
  Transmission Date: 20201103
  Serious: Yes (Death, Other)
  Sender: FDA-Public Use
  Company Number: PT-GLAXOSMITHKLINE-PT2020GSK117725

PATIENT
  Age: 68 Year
  Sex: Female

DRUGS (1)
  1. CEFUROXIME. [Suspect]
     Active Substance: CEFUROXIME
     Indication: PYELONEPHRITIS ACUTE
     Dosage: UNK

REACTIONS (20)
  - Blood pressure systolic decreased [Unknown]
  - Aortic aneurysm rupture [Fatal]
  - Haemorrhage [Fatal]
  - Abdominal tenderness [Unknown]
  - Renal necrosis [Unknown]
  - Drug ineffective [Fatal]
  - Hypotension [Unknown]
  - Haemoglobin decreased [Unknown]
  - White blood cell count increased [Unknown]
  - Aortic aneurysm [Unknown]
  - Cardiac arrest [Fatal]
  - Hypovolaemic shock [Fatal]
  - Pallor [Unknown]
  - Septic shock [Unknown]
  - General physical health deterioration [Unknown]
  - Sepsis [Unknown]
  - Confusional state [Unknown]
  - Tachypnoea [Unknown]
  - Tachycardia [Unknown]
  - Retroperitoneal haematoma [Unknown]
